FAERS Safety Report 5170519-7 (Version None)
Quarter: 2006Q4

REPORT INFORMATION
  Report Type: 
  Country: None (occurrence: None)
  Receive Date: 20061212
  Receipt Date: 20060918
  Transmission Date: 20070319
  Serious: Yes (Life-Threatening, Hospitalization, Other)
  Sender: FDA-Public Use
  Company Number: GR-ABBOTT-06P-066-0344439-00

PATIENT
  Age: 3 Year
  Sex: Male
  Weight: 30 kg

DRUGS (4)
  1. SEVOFLURANE [Suspect]
     Indication: INDUCTION OF ANAESTHESIA
     Dosage: NOT REPORTED
  2. FENTANYL [Concomitant]
     Indication: ANALGESIC EFFECT
     Dosage: 3MCG/KG 3 TIMES A DAY
  3. ATRACURIUM BESYLATE [Concomitant]
     Indication: HYPOTONIA
     Dosage: 0.5 MG/KG SINGLE DOSE
  4. METHYLPREDNISOLONE [Concomitant]
     Indication: PROPHYLAXIS
     Route: 042

REACTIONS (3)
  - ACUTE RESPIRATORY DISTRESS SYNDROME [None]
  - PULMONARY OEDEMA [None]
  - SEPSIS [None]
